FAERS Safety Report 5208639-0 (Version None)
Quarter: 2007Q1

REPORT INFORMATION
  Report Type: 
  Country: None (occurrence: None)
  Receive Date: 20070116
  Receipt Date: 20070104
  Transmission Date: 20070707
  Serious: Yes (Hospitalization)
  Sender: FDA-Public Use
  Company Number: PHMT2007CA00461

PATIENT
  Age: 41 Year
  Sex: Male

DRUGS (3)
  1. CLOZARIL [Suspect]
     Indication: SCHIZOPHRENIA
     Route: 048
     Dates: start: 19960731
  2. CLOZARIL [Suspect]
     Dosage: THIRTY 100 MG TABS
     Route: 048
     Dates: start: 20070101, end: 20070101
  3. CHLORPROMAZINE [Suspect]
     Dosage: FIFTY 50 MG TABS
     Route: 048
     Dates: start: 20070101, end: 20070101

REACTIONS (1)
  - MULTIPLE DRUG OVERDOSE [None]
